FAERS Safety Report 8419511-7 (Version None)
Quarter: 2012Q2

REPORT INFORMATION
  Report Type: 
  Country: None (occurrence: None)
  Receive Date: 20120607
  Receipt Date: 20110623
  Transmission Date: 20120825
  Serious: Yes (Other)
  Sender: FDA-Public Use
  Company Number: US-BRISTOL-MYERS SQUIBB COMPANY-15852668

PATIENT
  Age: 43 Year

DRUGS (2)
  1. SUSTIVA [Suspect]
     Indication: HIV INFECTION
  2. ATRIPLA [Concomitant]
     Dates: start: 20110301

REACTIONS (1)
  - DRUG RESISTANCE [None]
